FAERS Safety Report 19711101 (Version 2)
Quarter: 2021Q4

REPORT INFORMATION
  Report Type: Spontaneous
  Country: US (occurrence: US)
  Receive Date: 20210817
  Receipt Date: 20211115
  Transmission Date: 20220304
  Serious: No
  Sender: FDA-Public Use
  Company Number: US-TEVA-2021-US-1939793

PATIENT
  Sex: Male

DRUGS (1)
  1. ZOLPIDEM TARTRATE [Suspect]
     Active Substance: ZOLPIDEM TARTRATE
     Indication: Insomnia
     Dosage: SEVERAL YEARS ON AS NEEDED BASIS
     Route: 065

REACTIONS (4)
  - Therapeutic product effect delayed [Unknown]
  - Insomnia [Unknown]
  - Product substitution issue [Unknown]
  - Product formulation issue [Unknown]
